FAERS Safety Report 14658938 (Version 1)
Quarter: 2018Q1

REPORT INFORMATION
  Report Type: Spontaneous
  Country: FR (occurrence: FR)
  Receive Date: 20180320
  Receipt Date: 20180320
  Transmission Date: 20180509
  Serious: Yes (Other)
  Sender: FDA-Public Use
  Company Number: FR-BAYER-2018-045873

PATIENT
  Age: 38 Year
  Sex: Female
  Weight: 73 kg

DRUGS (2)
  1. MIRENA [Suspect]
     Active Substance: LEVONORGESTREL
     Indication: CONTRACEPTION
     Route: 015
  2. MIRENA [Suspect]
     Active Substance: LEVONORGESTREL
     Indication: CONTRACEPTION

REACTIONS (14)
  - Anxiety [Recovering/Resolving]
  - Gastrointestinal disorder [Recovering/Resolving]
  - Torticollis [Recovering/Resolving]
  - Genital haemorrhage [Recovering/Resolving]
  - Trismus [Recovering/Resolving]
  - Vertigo [Recovering/Resolving]
  - Diffuse alopecia [Recovering/Resolving]
  - Muscle spasms [Recovering/Resolving]
  - Tic [Recovering/Resolving]
  - Hypoaesthesia [Recovering/Resolving]
  - Tendonitis [Recovering/Resolving]
  - Arthralgia [Recovering/Resolving]
  - Salivary gland disorder [Recovering/Resolving]
  - Myalgia [Recovering/Resolving]

NARRATIVE: CASE EVENT DATE: 20041201
